FAERS Safety Report 4824770-3 (Version None)
Quarter: 2005Q4

REPORT INFORMATION
  Report Type: 
  Country: None (occurrence: None)
  Receive Date: 20051108
  Receipt Date: 20051028
  Transmission Date: 20060501
  Serious: Yes (Death)
  Sender: FDA-Public Use
  Company Number: 12757

PATIENT
  Age: 65 Year
  Sex: Female
  Weight: 90 kg

DRUGS (17)
  1. METHOTREXATE [Suspect]
     Indication: RHEUMATOID ARTHRITIS
     Dosage: 20 MG WEEKLY
  2. HEPARIN [Concomitant]
  3. PREDNISOLONE [Concomitant]
  4. TEMAZEPAM [Concomitant]
  5. FOLIC ACID [Concomitant]
  6. OMEPRAZOLE [Concomitant]
  7. ASPIRIN [Concomitant]
  8. ATENOLOL [Concomitant]
  9. NICORANDIL [Concomitant]
  10. GLYCERYL TRINITRATE [Concomitant]
  11. ISOSORBIDE MONONITRATE [Concomitant]
  12. PRAVASTATIN [Concomitant]
  13. CALCICHEW D3 [Concomitant]
  14. DESLORATADINE [Concomitant]
  15. RAMIPRIL [Concomitant]
  16. CO-CODAMOL [Concomitant]
  17. FRUSEMIDE [Concomitant]

REACTIONS (4)
  - HEPATIC NECROSIS [None]
  - HEPATIC RUPTURE [None]
  - HEPATIC STEATOSIS [None]
  - PERITONEAL HAEMORRHAGE [None]
